FAERS Safety Report 9628633 (Version 1)
Quarter: 2013Q4

REPORT INFORMATION
  Report Type: Spontaneous
  Country: US (occurrence: US)
  Receive Date: 20131017
  Receipt Date: 20131017
  Transmission Date: 20140711
  Serious: No
  Sender: FDA-Public Use
  Company Number: US-JNJFOC-20131005433

PATIENT
  Sex: Female

DRUGS (5)
  1. INVEGA [Suspect]
     Indication: SCHIZOAFFECTIVE DISORDER
     Route: 048
  2. TOPAMAX [Concomitant]
     Indication: AFFECTIVE DISORDER
     Route: 048
  3. CELEXA [Concomitant]
     Indication: AFFECTIVE DISORDER
     Route: 048
  4. LITHIUM [Concomitant]
     Indication: AFFECTIVE DISORDER
     Route: 048
  5. LITHIUM [Concomitant]
     Indication: AFFECTIVE DISORDER
     Route: 048

REACTIONS (1)
  - Drug level increased [Unknown]
